FAERS Safety Report 23862687 (Version 1)
Quarter: 2024Q2

REPORT INFORMATION
  Report Type: Spontaneous
  Country: US (occurrence: None)
  Receive Date: 20240515
  Receipt Date: 20240515
  Transmission Date: 20240716
  Serious: Yes (Hospitalization, Other)
  Sender: FDA-Public Use
  Company Number: None

PATIENT
  Age: 25 Year
  Sex: Male
  Weight: 67.5 kg

DRUGS (1)
  1. MINOXIDIL [Suspect]
     Active Substance: MINOXIDIL
     Indication: Hair growth abnormal
     Dosage: FREQUENCY : TWICE A DAY;?
     Route: 048
     Dates: start: 20230918, end: 20240413

REACTIONS (6)
  - Panic attack [None]
  - Hypertension [None]
  - Anxiety [None]
  - Palpitations [None]
  - Heart rate increased [None]
  - Tremor [None]

NARRATIVE: CASE EVENT DATE: 20240413
